FAERS Safety Report 10033110 (Version 1)
Quarter: 2014Q1

REPORT INFORMATION
  Report Type: Spontaneous
  Country: US (occurrence: US)
  Receive Date: 20140324
  Receipt Date: 20140324
  Transmission Date: 20141002
  Serious: Yes (Other)
  Sender: FDA-Public Use
  Company Number: US-MPIJNJ-2014MPI000777

PATIENT
  Age: 58 Year
  Sex: Female

DRUGS (1)
  1. VELCADE [Suspect]
     Indication: PLASMA CELL MYELOMA

REACTIONS (13)
  - Cardiomyopathy [Unknown]
  - Electrolyte imbalance [Unknown]
  - Mucosal inflammation [Recovered/Resolved]
  - Weight decreased [Unknown]
  - Pancytopenia [Unknown]
  - Fatigue [Unknown]
  - Diarrhoea [Unknown]
  - Neuropathy peripheral [Unknown]
  - Dysgeusia [Unknown]
  - Nausea [Recovering/Resolving]
  - Vomiting [Unknown]
  - Febrile neutropenia [Recovered/Resolved]
  - Cardiac failure congestive [Unknown]
